FAERS Safety Report 16462753 (Version 1)
Quarter: 2019Q2

REPORT INFORMATION
  Report Type: Spontaneous
  Country: US (occurrence: US)
  Receive Date: 20190512
  Receipt Date: 20190512
  Transmission Date: 20190711
  Serious: No
  Sender: FDA-Public Use
  Company Number: None

PATIENT
  Age: 62 Year
  Sex: Female

DRUGS (1)
  1. IBRANCE [Suspect]
     Active Substance: PALBOCICLIB
     Route: 048
     Dates: start: 201611

REACTIONS (4)
  - White blood cell count decreased [None]
  - Arthralgia [None]
  - Myalgia [None]
  - Peripheral swelling [None]

NARRATIVE: CASE EVENT DATE: 20190512
